FAERS Safety Report 8934638 (Version 2)
Quarter: 2012Q4

REPORT INFORMATION
  Report Type: 
  Country: US (occurrence: US)
  Receive Date: 20121129
  Receipt Date: 20121217
  Transmission Date: 20130627
  Serious: Yes (Other)
  Sender: FDA-Public Use
  Company Number: US-BAYER-2012-123928

PATIENT
  Age: 19 Year
  Sex: Female
  Weight: 58.05 kg

DRUGS (2)
  1. BEYAZ [Suspect]
     Indication: CONTRACEPTION
     Dosage: UNK
     Dates: start: 201101, end: 20111001
  2. BEYAZ [Suspect]
     Indication: POLYCYSTIC OVARIAN SYNDROME

REACTIONS (10)
  - Deep vein thrombosis [None]
  - Deep vein thrombosis [Recovered/Resolved]
  - Injury [None]
  - Pain [None]
  - Anxiety [None]
  - Anhedonia [None]
  - Fear of disease [None]
  - Psychological trauma [None]
  - Intracranial venous sinus thrombosis [None]
  - Nuclear magnetic resonance imaging brain abnormal [None]
